FAERS Safety Report 24188154 (Version 1)
Quarter: 2024Q3

REPORT INFORMATION
  Report Type: Spontaneous
  Country: CN (occurrence: CN)
  Receive Date: 20240808
  Receipt Date: 20240808
  Transmission Date: 20241016
  Serious: Yes (Life-Threatening, Hospitalization, Other)
  Sender: JIANGSU HANSOH PHARMACEUTICAL
  Company Number: CN-Jiangsu Hansoh Pharmaceutical Co., Ltd-2160175

PATIENT
  Age: 71 Year
  Sex: Male

DRUGS (2)
  1. VINORELBINE TARTRATE [Suspect]
     Active Substance: VINORELBINE TARTRATE
     Indication: Lung squamous cell carcinoma recurrent
     Route: 041
     Dates: start: 20240417, end: 20240417
  2. FLUOROURACIL [Concomitant]
     Active Substance: FLUOROURACIL
     Dates: start: 20240417, end: 20240417

REACTIONS (2)
  - Agranulocytosis [Recovering/Resolving]
  - Hyperpyrexia [Unknown]

NARRATIVE: CASE EVENT DATE: 20240426
